FAERS Safety Report 4453439-2 (Version None)
Quarter: 2004Q3

REPORT INFORMATION
  Report Type: 
  Country: None (occurrence: None)
  Receive Date: 20040920
  Receipt Date: 20040908
  Transmission Date: 20050211
  Serious: Yes (Death)
  Sender: FDA-Public Use
  Company Number: US-JNJFOC-20040902881

PATIENT
  Sex: Female

DRUGS (10)
  1. RISPERDAL [Suspect]
     Indication: DEMENTIA
     Route: 049
     Dates: start: 20030829, end: 20040823
  2. IRON SUPPLEMENT [Concomitant]
  3. COUMADIN [Concomitant]
  4. COUMADIN [Concomitant]
  5. LASIX [Concomitant]
  6. ATIVAN [Concomitant]
  7. NEXIUM [Concomitant]
  8. ARICEPT [Concomitant]
  9. LEXAPRO [Concomitant]
     Dosage: 1/2 OF A 20 MG DOSE.
  10. TYLENOL [Concomitant]

REACTIONS (1)
  - ARRHYTHMIA [None]
